FAERS Safety Report 25099867 (Version 1)
Quarter: 2025Q1

REPORT INFORMATION
  Report Type: Spontaneous
  Country: US (occurrence: US)
  Receive Date: 20250320
  Receipt Date: 20250320
  Transmission Date: 20250409
  Serious: No
  Sender: REGENERON
  Company Number: US-REGENERON PHARMACEUTICALS, INC.-2024-171183

PATIENT
  Sex: Female

DRUGS (2)
  1. EYLEA HD [Suspect]
     Active Substance: AFLIBERCEPT
     Indication: Macular degeneration
     Dosage: UNK, Q6W, FORMULATION: HD VIAL
     Dates: start: 2024, end: 2024
  2. EYLEA HD [Suspect]
     Active Substance: AFLIBERCEPT
     Dosage: UNK, Q8W, FORMULATION: HD VIAL
     Dates: start: 2024

REACTIONS (4)
  - Visual impairment [Unknown]
  - Visual acuity reduced [Unknown]
  - Lacrimation increased [Unknown]
  - Therapeutic response shortened [Unknown]

NARRATIVE: CASE EVENT DATE: 20240101
